FAERS Safety Report 15719349 (Version 1)
Quarter: 2018Q4

REPORT INFORMATION
  Report Type: Spontaneous
  Country: GB (occurrence: GB)
  Receive Date: 20181213
  Receipt Date: 20181213
  Transmission Date: 20190205
  Serious: Yes (Death)
  Sender: FDA-Public Use
  Company Number: GB-INDIVIOR LIMITED-INDV-116320-2018

PATIENT
  Age: 74 Year
  Sex: Female

DRUGS (3)
  1. BURINEX K [Concomitant]
     Indication: PRODUCT USED FOR UNKNOWN INDICATION
     Dosage: 573 MG, ONE DAY
     Route: 048
     Dates: start: 19770101
  2. LOPRESOR                           /00376902/ [Concomitant]
     Active Substance: METOPROLOL TARTRATE
     Indication: PRODUCT USED FOR UNKNOWN INDICATION
     Dosage: 600 MG, ONE DAY
     Route: 048
     Dates: start: 19770101
  3. TEMGESIC 0.2 MG TABLET [Suspect]
     Active Substance: BUPRENORPHINE HYDROCHLORIDE
     Indication: PRODUCT USED FOR UNKNOWN INDICATION
     Dosage: UNK, ONE DAY
     Route: 048

REACTIONS (2)
  - Cardiac arrest [Fatal]
  - Myocardial infarction [Fatal]
